FAERS Safety Report 9573484 (Version 1)
Quarter: 2013Q4

REPORT INFORMATION
  Report Type: Spontaneous
  Country: US (occurrence: US)
  Receive Date: 20131001
  Receipt Date: 20131001
  Transmission Date: 20140711
  Serious: Yes (Other)
  Sender: FDA-Public Use
  Company Number: US-FRI-1000049210

PATIENT
  Age: 11 Year
  Sex: Female

DRUGS (4)
  1. NAMENDA [Suspect]
     Indication: NERVOUS SYSTEM DISORDER
  2. PERSANTINE [Concomitant]
  3. ZANTAC [Concomitant]
  4. PREVACID [Concomitant]

REACTIONS (2)
  - Serum serotonin increased [Recovering/Resolving]
  - Off label use [Not Recovered/Not Resolved]
